FAERS Safety Report 4836005-6 (Version None)
Quarter: 2005Q4

REPORT INFORMATION
  Report Type: 
  Country: None (occurrence: None)
  Receive Date: 20051118
  Receipt Date: 20050927
  Transmission Date: 20060501
  Serious: Yes (Other)
  Sender: FDA-Public Use
  Company Number: 2005BI018153

PATIENT
  Sex: Female
  Weight: 103.8737 kg

DRUGS (3)
  1. AVONEX [Suspect]
     Indication: MULTIPLE SCLEROSIS
     Dosage: 30 UG; QW; IM
     Route: 030
     Dates: start: 20010101
  2. AVONEX [Suspect]
     Indication: MULTIPLE SCLEROSIS
     Dosage: 30 UG; QW; IM
     Route: 030
  3. AVONEX [Suspect]
     Indication: MULTIPLE SCLEROSIS
     Dosage: 30  UG;QW;IM
     Route: 030

REACTIONS (10)
  - ARTHRITIS [None]
  - ASTHENIA [None]
  - BACK PAIN [None]
  - CEREBROSPINAL FLUID RHINORRHOEA [None]
  - DELUSION [None]
  - DIFFICULTY IN WALKING [None]
  - HALLUCINATION [None]
  - PAIN IN EXTREMITY [None]
  - SLEEP DISORDER [None]
  - STRESS [None]
